FAERS Safety Report 5003179-6 (Version None)
Quarter: 2006Q2

REPORT INFORMATION
  Report Type: 
  Country: None (occurrence: None)
  Receive Date: 20060510
  Receipt Date: 20060426
  Transmission Date: 20061013
  Serious: Yes (Hospitalization)
  Sender: FDA-Public Use
  Company Number: 200610499BVD

PATIENT
  Age: 70 Year
  Sex: Female
  Weight: 95.5 kg

DRUGS (15)
  1. MOXIFLOXACIN HCL [Suspect]
     Indication: CHRONIC OBSTRUCTIVE PULMONARY DISEASE
     Dosage: 400 MG, TOTAL DAILY, ORAL
     Route: 048
     Dates: start: 20060314, end: 20060321
  2. MOXIFLOXACIN HCL [Suspect]
     Indication: PNEUMONIA
     Dosage: 400 MG, TOTAL DAILY, ORAL
     Route: 048
     Dates: start: 20060314, end: 20060321
  3. TORSEMIDE [Concomitant]
  4. SULFASALAZIN [Concomitant]
  5. RAMIPRIL [Concomitant]
  6. MOXONIDINE [Concomitant]
  7. NEBILET [Concomitant]
  8. CARDULAR PP [Concomitant]
  9. NEXIUM [Concomitant]
  10. L-THYROXIN ^HENNING BERLIN^ [Concomitant]
  11. ALLOPURINOL [Concomitant]
  12. PRAVASIN [Concomitant]
  13. DEKRISTOL [Concomitant]
  14. FERRO SANOL COMP [Concomitant]
  15. BERLINSULIN [Concomitant]

REACTIONS (11)
  - ACUTE PRERENAL FAILURE [None]
  - BLOOD CULTURE POSITIVE [None]
  - DIABETIC NEPHROPATHY [None]
  - DIALYSIS [None]
  - DIARRHOEA [None]
  - NEPHRITIS ALLERGIC [None]
  - NEPHRITIS INTERSTITIAL [None]
  - NEPHROPATHY TOXIC [None]
  - NEPHROSCLEROSIS [None]
  - RENAL FAILURE ACUTE [None]
  - STAPHYLOCOCCAL INFECTION [None]
